FAERS Safety Report 13901909 (Version 1)
Quarter: 2017Q3

REPORT INFORMATION
  Report Type: Spontaneous
  Country: US (occurrence: US)
  Receive Date: 20170824
  Receipt Date: 20170824
  Transmission Date: 20171127
  Serious: No
  Sender: FDA-Public Use
  Company Number: US-ROCHE-1127650

PATIENT
  Age: 37 Year
  Sex: Female

DRUGS (13)
  1. COMPAZINE [Concomitant]
     Active Substance: PROCHLORPERAZINE MALEATE
     Dosage: IVPB
     Route: 065
     Dates: start: 19991112
  2. HERCEPTIN [Suspect]
     Active Substance: TRASTUZUMAB
     Indication: BREAST CANCER
     Dosage: IVPB
     Route: 065
     Dates: start: 19991029
  3. DEXAMETHASONE. [Concomitant]
     Active Substance: DEXAMETHASONE
     Dosage: IVPB
     Route: 065
     Dates: start: 19991029
  4. TAXOTERE [Concomitant]
     Active Substance: DOCETAXEL
     Dosage: IVPB
     Route: 065
     Dates: start: 19991129
  5. TAXOTERE [Concomitant]
     Active Substance: DOCETAXEL
     Dosage: IVPB
     Route: 065
     Dates: start: 19991112
  6. HERCEPTIN [Suspect]
     Active Substance: TRASTUZUMAB
     Dosage: IVPB
     Route: 065
     Dates: start: 19991112
  7. TAXOTERE [Concomitant]
     Active Substance: DOCETAXEL
     Dosage: IVPB
     Route: 065
     Dates: start: 19991029
  8. DEXAMETHASONE. [Concomitant]
     Active Substance: DEXAMETHASONE
     Dosage: IVPB
     Route: 065
     Dates: start: 19991112
  9. HEPARIN [Concomitant]
     Active Substance: HEPARIN SODIUM
     Dosage: 100 CC
     Route: 065
  10. HERCEPTIN [Suspect]
     Active Substance: TRASTUZUMAB
     Dosage: IVPB
     Route: 065
     Dates: start: 19991129
  11. COMPAZINE [Concomitant]
     Active Substance: PROCHLORPERAZINE MALEATE
     Dosage: IVPB
     Route: 065
     Dates: start: 19991029
  12. COMPAZINE [Concomitant]
     Active Substance: PROCHLORPERAZINE MALEATE
     Dosage: IVPB
     Route: 065
     Dates: start: 19991029
  13. DEXAMETHASONE. [Concomitant]
     Active Substance: DEXAMETHASONE
     Dosage: IVPB
     Route: 065
     Dates: start: 19991129

REACTIONS (3)
  - Paraesthesia [Unknown]
  - Hypoaesthesia [Unknown]
  - Cough [Unknown]

NARRATIVE: CASE EVENT DATE: 19991029
